FAERS Safety Report 9285163 (Version 1)
Quarter: 2013Q2

REPORT INFORMATION
  Report Type: Spontaneous
  Country: PL (occurrence: None)
  Receive Date: 20130507
  Receipt Date: 20130507
  Transmission Date: 20140414
  Serious: Yes (Hospitalization)
  Sender: FDA-Public Use
  Company Number: PL-DEXPHARM-20130178

PATIENT
  Age: 46 Year
  Sex: Female

DRUGS (1)
  1. CHLORHEXIDINE [Suspect]

REACTIONS (2)
  - Occupational asthma [None]
  - Occupational exposure to product [None]
